FAERS Safety Report 16788113 (Version 4)
Quarter: 2019Q4

REPORT INFORMATION
  Report Type: Spontaneous
  Country: JP (occurrence: JP)
  Receive Date: 20190909
  Receipt Date: 20191230
  Transmission Date: 20200122
  Serious: Yes (Hospitalization, Other)
  Sender: FDA-Public Use
  Company Number: JP-TEVA-2018-JP-972341

PATIENT
  Age: 66 Year
  Sex: Male

DRUGS (18)
  1. BENDAMUSTINE HYDROCHLORIDE. [Suspect]
     Active Substance: BENDAMUSTINE HYDROCHLORIDE
     Dosage: 90 MG/M2, ONCE DAILY (CYCLIC)
     Route: 042
     Dates: start: 20171024, end: 20171025
  2. RITUXIMAB. [Concomitant]
     Active Substance: RITUXIMAB
     Route: 041
     Dates: start: 20171024
  3. RITUXIMAB. [Concomitant]
     Active Substance: RITUXIMAB
     Route: 041
     Dates: start: 20180327
  4. ACICLOVIR [Concomitant]
     Active Substance: ACYCLOVIR
     Indication: PROPHYLAXIS
     Route: 065
  5. BENDAMUSTINE HYDROCHLORIDE. [Suspect]
     Active Substance: BENDAMUSTINE HYDROCHLORIDE
     Indication: B-CELL LYMPHOMA
     Dosage: 90 MG/M2, ONCE DAILY (CYCLIC)
     Route: 042
     Dates: start: 20170704, end: 20170705
  6. RITUXIMAB. [Concomitant]
     Active Substance: RITUXIMAB
     Route: 041
     Dates: start: 20170926
  7. RITUXIMAB. [Concomitant]
     Active Substance: RITUXIMAB
     Route: 041
     Dates: start: 20180522
  8. BENDAMUSTINE HYDROCHLORIDE. [Suspect]
     Active Substance: BENDAMUSTINE HYDROCHLORIDE
     Dosage: 90 MG/M2, ONCE DAILY (CYCLIC)
     Route: 042
     Dates: start: 20170829, end: 20170830
  9. CANDESARTAN CILEXETIL. [Concomitant]
     Active Substance: CANDESARTAN CILEXETIL
     Indication: HYPERTENSION
     Route: 048
     Dates: start: 20150507
  10. BENDAMUSTINE HYDROCHLORIDE. [Suspect]
     Active Substance: BENDAMUSTINE HYDROCHLORIDE
     Dosage: 90 MG/M2, ONCE DAILY (CYCLIC)
     Route: 042
     Dates: start: 20170801, end: 20170802
  11. BENDAMUSTINE HYDROCHLORIDE. [Suspect]
     Active Substance: BENDAMUSTINE HYDROCHLORIDE
     Dosage: 90 MG/M2, ONCE DAILY (CYCLIC)
     Route: 042
     Dates: start: 20171121, end: 20171122
  12. SENNOSIDE                          /00571901/ [Concomitant]
     Active Substance: SENNOSIDES A AND B
     Indication: CONSTIPATION
     Route: 048
     Dates: start: 20150507
  13. RITUXIMAB. [Concomitant]
     Active Substance: RITUXIMAB
     Indication: B-CELL LYMPHOMA
     Route: 041
     Dates: start: 20170704
  14. RITUXIMAB. [Concomitant]
     Active Substance: RITUXIMAB
     Route: 041
     Dates: start: 20170801
  15. RITUXIMAB. [Concomitant]
     Active Substance: RITUXIMAB
     Route: 041
     Dates: start: 20170829
  16. BENDAMUSTINE HYDROCHLORIDE. [Suspect]
     Active Substance: BENDAMUSTINE HYDROCHLORIDE
     Dosage: 90 MG/M2, ONCE DAILY (CYCLIC)
     Route: 042
     Dates: start: 20170926, end: 20170927
  17. RITUXIMAB. [Concomitant]
     Active Substance: RITUXIMAB
     Route: 041
     Dates: start: 20171121
  18. MAGNESIUM OXIDE. [Concomitant]
     Active Substance: MAGNESIUM OXIDE
     Indication: CONSTIPATION
     Route: 048
     Dates: start: 20150507

REACTIONS (5)
  - Herpes zoster disseminated [Recovered/Resolved]
  - Prescribed underdose [Unknown]
  - Rash [Recovered/Resolved]
  - Hypersensitivity [Recovered/Resolved]
  - CD4 lymphocytes decreased [Unknown]

NARRATIVE: CASE EVENT DATE: 20170704
